FAERS Safety Report 21891023 (Version 4)
Quarter: 2024Q2

REPORT INFORMATION
  Report Type: Spontaneous
  Country: US (occurrence: US)
  Receive Date: 20230120
  Receipt Date: 20240521
  Transmission Date: 20240716
  Serious: No
  Sender: FDA-Public Use
  Company Number: US-BIOGEN-2021BI01009766

PATIENT
  Age: 60 Year
  Sex: Female

DRUGS (2)
  1. TYSABRI [Suspect]
     Active Substance: NATALIZUMAB
     Indication: Multiple sclerosis
     Route: 050
     Dates: start: 20201120
  2. TYSABRI [Suspect]
     Active Substance: NATALIZUMAB
     Dosage: OFF LABEL USE
     Route: 050

REACTIONS (10)
  - Prescribed underdose [Not Recovered/Not Resolved]
  - Balance disorder [Not Recovered/Not Resolved]
  - Asthenia [Unknown]
  - Muscle spasticity [Unknown]
  - Vein disorder [Unknown]
  - Pain in extremity [Not Recovered/Not Resolved]
  - Muscle spasms [Unknown]
  - Arthralgia [Unknown]
  - Fatigue [Recovered/Resolved]
  - Headache [Recovered/Resolved]

NARRATIVE: CASE EVENT DATE: 20221124
